FAERS Safety Report 12826053 (Version 1)
Quarter: 2016Q4

REPORT INFORMATION
  Report Type: Spontaneous
  Country: US (occurrence: US)
  Receive Date: 20161007
  Receipt Date: 20161007
  Transmission Date: 20170207
  Serious: No
  Sender: FDA-Public Use
  Company Number: US-WATSON-2015-24847

PATIENT
  Age: 39 Year
  Sex: Female

DRUGS (1)
  1. FENTANYL-100 (WATSON LABORATORIES) [Suspect]
     Active Substance: FENTANYL
     Indication: PAIN
     Dosage: 100 MCG, 2 PATCHES EVERY 48 HOURS
     Route: 062
     Dates: start: 20150923, end: 20150924

REACTIONS (4)
  - Feeling jittery [Recovered/Resolved]
  - Product substitution issue [None]
  - Underdose [Recovered/Resolved]
  - Palpitations [Recovered/Resolved]

NARRATIVE: CASE EVENT DATE: 20150923
